FAERS Safety Report 12159205 (Version 3)
Quarter: 2016Q1

REPORT INFORMATION
  Report Type: Report from Study
  Country: US (occurrence: US)
  Receive Date: 20160308
  Receipt Date: 20160316
  Transmission Date: 20160526
  Serious: No
  Sender: FDA-Public Use
  Company Number: PHEH2016US005359

PATIENT
  Sex: Male

DRUGS (2)
  1. ZOMETA [Suspect]
     Active Substance: ZOLEDRONIC ACID
     Indication: PRODUCT USED FOR UNKNOWN INDICATION
     Dosage: 4 MG, QMO
     Route: 065
     Dates: start: 20141128
  2. ALIMTA [Concomitant]
     Active Substance: PEMETREXED DISODIUM
     Indication: PRODUCT USED FOR UNKNOWN INDICATION
     Dosage: Q3 WKS-30 DAYS

REACTIONS (6)
  - Dental caries [Unknown]
  - Tooth disorder [Unknown]
  - Dental discomfort [Unknown]
  - Exposed bone in jaw [Unknown]
  - Tooth loss [Unknown]
  - Loose tooth [Unknown]
